FAERS Safety Report 5476886-9 (Version None)
Quarter: 2007Q3

REPORT INFORMATION
  Report Type: 
  Country: None (occurrence: None)
  Receive Date: 20070831
  Receipt Date: 20060712
  Transmission Date: 20080115
  Serious: Yes (Life-Threatening)
  Sender: FDA-Public Use
  Company Number: S06-USA-02723-01

PATIENT
  Sex: Male
  Weight: 1.5 kg

DRUGS (1)
  1. INFASURF PRESERVATIVE FREE [Suspect]
     Dosage: 4.5 ML ONCE TRACH
     Dates: start: 20060712, end: 20060712

REACTIONS (1)
  - OBSTRUCTIVE AIRWAYS DISORDER [None]
